FAERS Safety Report 8012399-8 (Version None)
Quarter: 2011Q4

REPORT INFORMATION
  Report Type: 
  Country: None (occurrence: None)
  Receive Date: 20111228
  Receipt Date: 20111222
  Transmission Date: 20120403
  Serious: Yes (Hospitalization, Other)
  Sender: FDA-Public Use
  Company Number: US-ABBOTT-11P-163-0874484-00

PATIENT
  Sex: Male
  Weight: 70.37 kg

DRUGS (35)
  1. DEMEROL [Suspect]
     Indication: PAIN
     Dosage: Q96H PRN
     Route: 042
     Dates: start: 20111016
  2. HYDROCORTISONE/LIDOCAINE [Concomitant]
     Indication: PROCTALGIA
     Dates: start: 20110919
  3. MORPHINE SULFATE [Concomitant]
     Indication: PAIN
     Dosage: CONTROLLED RELEASE
     Dates: start: 20111015
  4. NEUPOGEN [Concomitant]
     Indication: NEUTROPENIA
     Dates: start: 20110614, end: 20110914
  5. NYSTATIN [Concomitant]
     Indication: MUCOSAL INFLAMMATION
     Dates: start: 20110821, end: 20110919
  6. CHLORHEXIDINE GLUCONATE [Concomitant]
     Indication: GINGIVITIS
     Dosage: MOUTHWASH
     Dates: start: 20110821, end: 20110919
  7. DILAUDID [Suspect]
     Indication: PAIN
     Route: 048
     Dates: start: 20110628, end: 20111016
  8. SCOPOLAMINE [Suspect]
     Indication: PAIN
  9. KYTRIL [Suspect]
     Indication: NAUSEA
     Route: 048
     Dates: start: 20111006
  10. LIDOCAINE [Concomitant]
     Indication: PROCTALGIA
     Dosage: GEL
     Dates: start: 20110919, end: 20110919
  11. POLYETHYLENE GLYCOL [Concomitant]
     Indication: CONSTIPATION
     Dates: start: 20110722, end: 20110919
  12. CELEXA [Suspect]
     Indication: DEPRESSION
     Dates: start: 20110331
  13. COLACE [Concomitant]
     Indication: CONSTIPATION
     Dates: start: 20110613
  14. FAMVIR [Concomitant]
     Indication: PROPHYLAXIS
  15. MEPRON [Concomitant]
     Indication: BACTERIAL INFECTION
     Route: 050
     Dates: start: 20110722
  16. FENTANYL [Suspect]
     Indication: PAIN
     Route: 062
     Dates: start: 20110919, end: 20111017
  17. FAMVIR [Concomitant]
     Indication: ANOGENITAL WARTS
     Dates: start: 20110331
  18. LORATADINE [Concomitant]
     Indication: SEASONAL ALLERGY
     Dates: start: 20110331
  19. FLUCONAZOLE [Concomitant]
     Indication: BACTERIAL INFECTION
     Dates: start: 20110331, end: 20110916
  20. FLUCONAZOLE [Concomitant]
     Indication: PROPHYLAXIS
  21. SENNOSIDES A+B [Concomitant]
     Indication: CONSTIPATION
     Dates: start: 20110906, end: 20110919
  22. MARINOL [Suspect]
     Indication: NAUSEA
     Dosage: 5 MG TID PRN
     Route: 048
     Dates: start: 20110404, end: 20111016
  23. SCOPOLAMINE [Suspect]
     Indication: NAUSEA
     Route: 062
     Dates: start: 20111006, end: 20111014
  24. SCOPOLAMINE [Suspect]
     Indication: VOMITING
  25. DEMEROL [Suspect]
     Indication: CHILLS
  26. CIPROFLOXACIN [Concomitant]
     Indication: BACTERIAL INFECTION
     Dates: start: 20110914, end: 20110916
  27. CIPROFLOXACIN [Concomitant]
     Indication: PROPHYLAXIS
  28. ATIVAN [Suspect]
     Indication: NAUSEA
     Dosage: 1 MG Q6H PRN, TAPERING
     Route: 048
     Dates: start: 20110311
  29. MARINOL [Suspect]
     Dates: start: 20111114
  30. ATIVAN [Suspect]
     Indication: ANXIETY
  31. KYTRIL [Suspect]
     Indication: VOMITING
  32. CONCERTA [Concomitant]
     Indication: ATTENTION DEFICIT/HYPERACTIVITY DISORDER
     Dates: start: 20110310
  33. MEPRON [Concomitant]
     Indication: PROPHYLAXIS
  34. OMEPRAZOLE [Concomitant]
     Indication: PROPHYLAXIS
     Dates: start: 20110413, end: 20111017
  35. HEPARIN [Concomitant]
     Indication: THROMBOSIS PROPHYLAXIS
     Dosage: FLUSH
     Dates: start: 20110331, end: 20110916

REACTIONS (12)
  - CONFUSIONAL STATE [None]
  - FEBRILE NEUTROPENIA [None]
  - BACILLUS INFECTION [None]
  - NEUTROPENIC INFECTION [None]
  - DYSKINESIA [None]
  - LEUKAEMIA RECURRENT [None]
  - HALLUCINATION [None]
  - FUNGAL RHINITIS [None]
  - CLOSTRIDIUM DIFFICILE COLITIS [None]
  - TOXICITY TO VARIOUS AGENTS [None]
  - PNEUMONIA FUNGAL [None]
  - ABDOMINAL PAIN [None]
